FAERS Safety Report 18423846 (Version 3)
Quarter: 2021Q1

REPORT INFORMATION
  Report Type: Spontaneous
  Country: CZ (occurrence: CZ)
  Receive Date: 20201024
  Receipt Date: 20210106
  Transmission Date: 20210419
  Serious: Yes (Death, Other)
  Sender: FDA-Public Use
  Company Number: CZ-009507513-2010CZE006944

PATIENT
  Sex: Male

DRUGS (1)
  1. INEGY 10 MG/20 MG TABLETY [Suspect]
     Active Substance: EZETIMIBE\SIMVASTATIN
     Dosage: UNK
     Route: 048

REACTIONS (1)
  - Death [Fatal]
